FAERS Safety Report 4989333-8 (Version None)
Quarter: 2006Q2

REPORT INFORMATION
  Report Type: 
  Country: None (occurrence: None)
  Receive Date: 20060426
  Receipt Date: 20060411
  Transmission Date: 20061013
  Serious: Yes (Congenital Anomaly)
  Sender: FDA-Public Use
  Company Number: 2006021998

PATIENT

DRUGS (5)
  1. VIRACEPT [Suspect]
     Indication: HIV TEST POSITIVE
     Dosage: 300 MG, ORAL
     Route: 048
     Dates: start: 20051017
  2. NORVIR [Concomitant]
  3. REYATAZ [Concomitant]
  4. TRUVADA [Concomitant]
  5. COMBIVIR [Concomitant]

REACTIONS (2)
  - DRUG EXPOSURE DURING PREGNANCY [None]
  - POLYDACTYLY [None]
